FAERS Safety Report 17469346 (Version 2)
Quarter: 2020Q2

REPORT INFORMATION
  Report Type: Spontaneous
  Country: US (occurrence: US)
  Receive Date: 20200227
  Receipt Date: 20200410
  Transmission Date: 20200713
  Serious: Yes (Hospitalization)
  Sender: FDA-Public Use
  Company Number: US-VERTEX PHARMACEUTICALS-2020-003473

PATIENT
  Sex: Female

DRUGS (17)
  1. DUPIXENT [Concomitant]
     Active Substance: DUPILUMAB
     Dosage: UNK
     Route: 058
  2. NEXIUM [Concomitant]
     Active Substance: ESOMEPRAZOLE MAGNESIUM
  3. GABAPENTIN. [Concomitant]
     Active Substance: GABAPENTIN
  4. CYPROHEPTADINE HCL [Concomitant]
     Active Substance: CYPROHEPTADINE HYDROCHLORIDE
  5. IPRATROPIUM BROMIDE. [Concomitant]
     Active Substance: IPRATROPIUM BROMIDE
  6. KALYDECO [Suspect]
     Active Substance: IVACAFTOR
     Indication: CYSTIC FIBROSIS
     Dosage: 150 MG, BID
     Route: 048
     Dates: start: 20130901
  7. PROBIOTIC BLEND [Concomitant]
  8. COLCRYS [Concomitant]
     Active Substance: COLCHICINE
  9. LEVOFLOXACIN. [Concomitant]
     Active Substance: LEVOFLOXACIN
  10. CITRACAL + D [CALCIUM CITRATE;COLECALCIFEROL] [Concomitant]
     Active Substance: CALCIUM CITRATE\CHOLECALCIFEROL
  11. ONDANSETRON [Concomitant]
     Active Substance: ONDANSETRON
  12. ELIQUIS [Concomitant]
     Active Substance: APIXABAN
  13. TOBI [Concomitant]
     Active Substance: TOBRAMYCIN
     Dosage: UNK
     Route: 055
  14. MELATONIN [Concomitant]
     Active Substance: MELATONIN
  15. CAYSTON [Concomitant]
     Active Substance: AZTREONAM
     Dosage: UNK, TID
     Route: 055
  16. TRAMADOL. [Concomitant]
     Active Substance: TRAMADOL
  17. FLUTICASONE PROPIONATE. [Concomitant]
     Active Substance: FLUTICASONE PROPIONATE

REACTIONS (1)
  - Infective pulmonary exacerbation of cystic fibrosis [Recovered/Resolved]
